FAERS Safety Report 6189267-X (Version None)
Quarter: 2009Q2

REPORT INFORMATION
  Report Type: 
  Country: None (occurrence: None)
  Receive Date: 20090512
  Receipt Date: 20090505
  Transmission Date: 20091009
  Serious: Yes (Other)
  Sender: FDA-Public Use
  Company Number: 265041

PATIENT
  Sex: Female

DRUGS (2)
  1. ETOPOSIDE [Suspect]
     Indication: CHEMOTHERAPY
     Dosage: PER_CYCLE, 3 CYCLES, INTRAPERITONEAL
     Route: 033
  2. CISPLATIN [Suspect]
     Indication: CHEMOTHERAPY
     Dosage: PER_CYCLE, 3 CYCLES, INTRAPERITONEAL
     Route: 033

REACTIONS (2)
  - ABDOMINAL ADHESIONS [None]
  - INTESTINAL OBSTRUCTION [None]
